FAERS Safety Report 4655926-0 (Version None)
Quarter: 2005Q2

REPORT INFORMATION
  Report Type: 
  Country: None (occurrence: None)
  Receive Date: 20050506
  Receipt Date: 20050506
  Transmission Date: 20051028
  Serious: No
  Sender: FDA-Public Use
  Company Number: None

PATIENT
  Age: 81 Year
  Sex: Female
  Weight: 46 kg

DRUGS (2)
  1. FLUCONAZOLE [Suspect]
     Indication: CANDIDIASIS
     Dosage: 200 MG   DAILY   INTRAVENOU
     Route: 042
     Dates: start: 20050328, end: 20050411
  2. FLUCONAZOLE [Suspect]
     Indication: FUNGAEMIA
     Dosage: 200 MG   DAILY   INTRAVENOU
     Route: 042
     Dates: start: 20050328, end: 20050411

REACTIONS (1)
  - BLOOD ALKALINE PHOSPHATASE INCREASED [None]
